FAERS Safety Report 8322789-1 (Version None)
Quarter: 2012Q2

REPORT INFORMATION
  Report Type: 
  Country: None (occurrence: None)
  Receive Date: 20120430
  Receipt Date: 20120416
  Transmission Date: 20120825
  Serious: Yes (Life-Threatening, Hospitalization)
  Sender: FDA-Public Use
  Company Number: GB-PURDUE-USA-2012-0086007

PATIENT
  Age: 56 Year
  Sex: Male

DRUGS (2)
  1. TRAMADOL HCL [Suspect]
     Indication: PRODUCT USED FOR UNKNOWN INDICATION
     Dosage: TOOK 60 TRAMADOL 50MG TABLETS
     Route: 048
  2. CO-DYDRAMOL [Suspect]
     Indication: PRODUCT USED FOR UNKNOWN INDICATION
     Dosage: TOOK 20 CO-DYDRAMOL (10/500) TABLETS
     Route: 048

REACTIONS (2)
  - HYPONATRAEMIA [None]
  - INTENTIONAL OVERDOSE [None]
